FAERS Safety Report 7493457-3 (Version None)
Quarter: 2011Q2

REPORT INFORMATION
  Report Type: 
  Country: None (occurrence: None)
  Receive Date: 20110520
  Receipt Date: 20100723
  Transmission Date: 20111010
  Serious: Yes (Hospitalization, Other)
  Sender: FDA-Public Use
  Company Number: US-BAYER-201018590NA

PATIENT
  Age: 29 Year
  Sex: Female
  Weight: 56.689 kg

DRUGS (5)
  1. TOPAMAX [Concomitant]
  2. IMITREX [Concomitant]
  3. ZOMIG [Concomitant]
  4. YASMIN [Suspect]
     Indication: ACNE
     Dosage: UNK UNK, UNK
     Route: 048
     Dates: start: 20010101
  5. YAZ [Suspect]
     Indication: ACNE
     Dosage: UNK UNK, UNK
     Route: 048

REACTIONS (7)
  - CHOLELITHIASIS [None]
  - ABDOMINAL PAIN [None]
  - ENDOMETRIOSIS [None]
  - VOMITING [None]
  - NEPHROLITHIASIS [None]
  - KIDNEY INFECTION [None]
  - NAUSEA [None]
